FAERS Safety Report 8414632-7 (Version None)
Quarter: 2012Q2

REPORT INFORMATION
  Report Type: 
  Country: None (occurrence: None)
  Receive Date: 20120605
  Receipt Date: 20120521
  Transmission Date: 20120825
  Serious: Yes (Hospitalization, Other)
  Sender: FDA-Public Use
  Company Number: US-WATSON-2012-09293

PATIENT
  Age: 68 Year
  Sex: Female

DRUGS (1)
  1. PREDNISONE TAB [Suspect]
     Indication: TEMPORAL ARTERITIS
     Dosage: 100 MG, DAILY
     Route: 048

REACTIONS (4)
  - DIABETES MELLITUS [None]
  - OSTEOPENIA [None]
  - VAGINAL ULCERATION [None]
  - VAGINAL PROLAPSE [None]
